FAERS Safety Report 5822384-X (Version None)
Quarter: 2008Q3

REPORT INFORMATION
  Report Type: 
  Country: None (occurrence: None)
  Receive Date: 20080723
  Receipt Date: 20080723
  Transmission Date: 20090109
  Serious: Yes (Life-Threatening, Hospitalization, Disabling)
  Sender: FDA-Public Use
  Company Number: None

PATIENT
  Age: 57 Year
  Sex: Female
  Weight: 63.5036 kg

DRUGS (2)
  1. CYTOMEL [Suspect]
     Indication: THYROXINE ABNORMAL
     Dosage: 25MCG DAILY; TITRATED TO 50MCG
     Dates: start: 20080601, end: 20080613
  2. CYTOMEL [Suspect]
     Indication: TRI-IODOTHYRONINE ABNORMAL
     Dosage: 25MCG DAILY; TITRATED TO 50MCG
     Dates: start: 20080601, end: 20080613

REACTIONS (2)
  - ATRIAL FIBRILLATION [None]
  - HEART RATE INCREASED [None]
